FAERS Safety Report 4534231-7 (Version None)
Quarter: 2004Q4

REPORT INFORMATION
  Report Type: 
  Country: None (occurrence: None)
  Receive Date: 20041214
  Receipt Date: 20040825
  Transmission Date: 20050328
  Serious: No
  Sender: FDA-Public Use
  Company Number: 2004231903US

PATIENT
  Age: 56 Year
  Sex: Male
  Weight: 76.2 kg

DRUGS (1)
  1. BEXTRA [Suspect]
     Indication: ANTIINFLAMMATORY THERAPY
     Dosage: 10 MG ORAL
     Route: 048
     Dates: start: 20040824

REACTIONS (1)
  - FEELING JITTERY [None]
